FAERS Safety Report 7311373-4 (Version None)
Quarter: 2011Q1

REPORT INFORMATION
  Report Type: 
  Country: None (occurrence: None)
  Receive Date: 20110224
  Receipt Date: 20110214
  Transmission Date: 20110831
  Serious: Yes (Other)
  Sender: FDA-Public Use
  Company Number: US-CEPHALON-2011000369

PATIENT
  Sex: Female

DRUGS (5)
  1. LOXAPINE [Concomitant]
  2. FLEXERIL [Concomitant]
  3. SYNTHROID [Concomitant]
  4. NUVIGIL [Suspect]
     Route: 048
     Dates: start: 20101209
  5. TRAZODONE HCL [Concomitant]

REACTIONS (3)
  - RASH [None]
  - PRURITUS [None]
  - BLISTER [None]
